FAERS Safety Report 6993864-9 (Version None)
Quarter: 2010Q3

REPORT INFORMATION
  Report Type: 
  Country: None (occurrence: None)
  Receive Date: 20100917
  Receipt Date: 20100330
  Transmission Date: 20110219
  Serious: No
  Sender: FDA-Public Use
  Company Number: US-ASTRAZENECA-2006UW05310

PATIENT
  Sex: Male
  Weight: 102.1 kg

DRUGS (8)
  1. SEROQUEL [Suspect]
     Route: 048
  2. ZYPREXA [Suspect]
     Dates: start: 20021209
  3. AVAPRO [Concomitant]
     Dates: start: 20021209
  4. ZYRTEC [Concomitant]
     Dates: start: 20021209
  5. PROVENTIL [Concomitant]
     Dosage: PRN
     Dates: start: 20021209
  6. METOPROLOL [Concomitant]
     Dosage: 100 MG TWO BID
     Dates: start: 20021209
  7. FLOVENT [Concomitant]
     Dosage: PRN
     Dates: start: 20021209
  8. EFFEXOR XR [Concomitant]
     Dates: start: 20021209

REACTIONS (1)
  - ILL-DEFINED DISORDER [None]
